FAERS Safety Report 5405642-2 (Version None)
Quarter: 2007Q3

REPORT INFORMATION
  Report Type: 
  Country: None (occurrence: None)
  Receive Date: 20070801
  Receipt Date: 20070719
  Transmission Date: 20080115
  Serious: Yes (Hospitalization)
  Sender: FDA-Public Use
  Company Number: 237995K06USA

PATIENT
  Age: 52 Year
  Sex: Female

DRUGS (1)
  1. REBIF [Suspect]
     Indication: MULTIPLE SCLEROSIS
     Dosage: 44 MCG, 3 IN 1 WEEKS, SUBCUTANEOUS
     Route: 058
     Dates: start: 20060906, end: 20061101

REACTIONS (6)
  - ASTHENIA [None]
  - CHILLS [None]
  - DYSGEUSIA [None]
  - NAUSEA [None]
  - PYREXIA [None]
  - STOMACH DISCOMFORT [None]
